FAERS Safety Report 4585313-5 (Version None)
Quarter: 2005Q1

REPORT INFORMATION
  Report Type: 
  Country: None (occurrence: None)
  Receive Date: 20050214
  Receipt Date: 20050131
  Transmission Date: 20050727
  Serious: Yes (Other)
  Sender: FDA-Public Use
  Company Number: 2004112108

PATIENT
  Sex: Female

DRUGS (1)
  1. ZOLOFT [Suspect]
     Indication: DEPRESSION
     Dosage: 50 MG (50 MG, 1 IN 1 D), ORAL
     Route: 048

REACTIONS (6)
  - BLOOD HOMOCYSTEINE INCREASED [None]
  - COELIAC DISEASE [None]
  - DIARRHOEA [None]
  - ENDOMETRIAL CANCER [None]
  - MUSCLE SPASMS [None]
  - WEIGHT DECREASED [None]
